FAERS Safety Report 21746381 (Version 1)
Quarter: 2022Q4

REPORT INFORMATION
  Report Type: Spontaneous
  Country: US (occurrence: US)
  Receive Date: 20221219
  Receipt Date: 20221219
  Transmission Date: 20230112
  Serious: Yes (Other)
  Sender: FDA-Public Use
  Company Number: US-JNJFOC-20221218151

PATIENT

DRUGS (4)
  1. IMBRUVICA [Suspect]
     Active Substance: IBRUTINIB
     Indication: Chronic lymphocytic leukaemia
     Route: 048
  2. IMBRUVICA [Suspect]
     Active Substance: IBRUTINIB
     Indication: Chronic lymphocytic leukaemia
     Dosage: DAYS 1-21 (CYCLES 2-6)
     Route: 048
  3. INVESTIGATIONAL PRODUCT [Suspect]
     Active Substance: INVESTIGATIONAL PRODUCT
     Indication: Chronic lymphocytic leukaemia
     Dosage: DAYS 1 AND 8 (CYCLE 1) AND DAYS 8 AND 15 (CYCLES?2-6) OF 21-DAY CYCLES
     Route: 042
  4. INVESTIGATIONAL PRODUCT [Suspect]
     Active Substance: INVESTIGATIONAL PRODUCT
     Indication: Chronic lymphocytic leukaemia
     Route: 042

REACTIONS (17)
  - Neutropenia [Unknown]
  - Fatigue [Unknown]
  - Headache [Unknown]
  - Dizziness [Unknown]
  - Thrombocytopenia [Unknown]
  - Anaemia [Unknown]
  - Contusion [Unknown]
  - Hyponatraemia [Unknown]
  - Thrombocytopenia [Unknown]
  - Oedema peripheral [Unknown]
  - Lymphocytosis [Unknown]
  - Arthralgia [Unknown]
  - Constipation [Unknown]
  - Dysgeusia [Unknown]
  - Alanine aminotransferase increased [Unknown]
  - Hypertension [Unknown]
  - Aspartate aminotransferase increased [Unknown]
